FAERS Safety Report 10089101 (Version 1)
Quarter: 2014Q2

REPORT INFORMATION
  Report Type: Spontaneous
  Country: US (occurrence: None)
  Receive Date: 20140418
  Receipt Date: 20140418
  Transmission Date: 20141212
  Serious: No
  Sender: FDA-Public Use
  Company Number: None

PATIENT
  Age: 51 Year
  Sex: Female
  Weight: 68.04 kg

DRUGS (1)
  1. IBUPROFEN [Suspect]
     Indication: BURSITIS
     Dosage: 3 PILLS THREE TIMES DAILY TAKEN BY MOUTH
     Route: 048
     Dates: start: 20140407, end: 20140409

REACTIONS (2)
  - Product substitution issue [None]
  - Therapeutic response changed [None]
